FAERS Safety Report 24820392 (Version 2)
Quarter: 2025Q1

REPORT INFORMATION
  Report Type: Spontaneous
  Country: FR (occurrence: FR)
  Receive Date: 20250108
  Receipt Date: 20250127
  Transmission Date: 20250408
  Serious: Yes (Hospitalization)
  Sender: SHIONOGI
  Company Number: FR-AFSSAPS-MA2024001862

PATIENT
  Sex: Male

DRUGS (1)
  1. CEFIDEROCOL [Suspect]
     Active Substance: CEFIDEROCOL
     Indication: Septic shock
     Route: 042
     Dates: end: 20231202

REACTIONS (4)
  - Drug level increased [Recovered/Resolved]
  - Nervous system disorder [Recovered/Resolved]
  - Hypotonia [Recovered/Resolved]
  - Antibiotic level above therapeutic [Recovered/Resolved]

NARRATIVE: CASE EVENT DATE: 20231125
